FAERS Safety Report 7532770-8 (Version None)
Quarter: 2011Q2

REPORT INFORMATION
  Report Type: 
  Country: None (occurrence: None)
  Receive Date: 20110608
  Receipt Date: 20110530
  Transmission Date: 20111010
  Serious: No
  Sender: FDA-Public Use
  Company Number: B0705955A

PATIENT
  Sex: Female
  Weight: 50 kg

DRUGS (7)
  1. TYKERB [Suspect]
     Indication: BREAST CANCER
     Dosage: 1250MG PER DAY
     Route: 048
     Dates: start: 20101025, end: 20101220
  2. AMOXAPINE [Concomitant]
     Indication: DEPRESSED MOOD
     Dosage: 75MG PER DAY
     Route: 048
     Dates: start: 20101025, end: 20101220
  3. ETODOLAC [Concomitant]
     Dosage: 200MG PER DAY
     Route: 048
     Dates: start: 20101025, end: 20101220
  4. XELODA [Suspect]
     Dosage: 3000MG PER DAY
     Route: 048
     Dates: start: 20101025, end: 20101220
  5. FAMOTIDINE [Concomitant]
     Dosage: 40MG PER DAY
     Route: 048
     Dates: start: 20101025, end: 20101220
  6. OXYCONTIN [Concomitant]
     Dosage: 80MG PER DAY
     Route: 048
     Dates: start: 20101025, end: 20101220
  7. ARIMIDEX [Concomitant]
     Indication: BREAST CANCER
     Dosage: 1MG PER DAY
     Route: 048
     Dates: start: 20100927, end: 20101206

REACTIONS (2)
  - SKIN EROSION [None]
  - HEPATIC FUNCTION ABNORMAL [None]
